FAERS Safety Report 5095833-5 (Version None)
Quarter: 2006Q3

REPORT INFORMATION
  Report Type: 
  Country: None (occurrence: None)
  Receive Date: 20060905
  Receipt Date: 20060901
  Transmission Date: 20061208
  Serious: Yes (Hospitalization)
  Sender: FDA-Public Use
  Company Number: GB-BRISTOL-MYERS SQUIBB COMPANY-13495387

PATIENT
  Age: 47 Year
  Sex: Female
  Weight: 80 kg

DRUGS (7)
  1. PACLITAXEL [Suspect]
     Indication: BREAST CANCER
     Dates: start: 20060822
  2. GEMCITABINE [Suspect]
     Indication: BREAST CANCER
     Dates: start: 20060822
  3. ATENOLOL [Concomitant]
     Indication: BLOOD PRESSURE
     Route: 048
  4. BENDROFLUAZIDE [Concomitant]
     Indication: BLOOD PRESSURE
     Route: 048
  5. PAROXETINE HCL [Concomitant]
     Indication: AFFECTIVE DISORDER
     Route: 048
  6. TAZOCIN [Concomitant]
     Indication: INFECTION
     Route: 042
     Dates: start: 20060828
  7. GENTAMICIN [Concomitant]
     Indication: INFECTION
     Route: 042
     Dates: start: 20060828

REACTIONS (3)
  - ERYTHEMA [None]
  - OEDEMA PERIPHERAL [None]
  - RASH PAPULAR [None]
